FAERS Safety Report 19806862 (Version 1)
Quarter: 2021Q3

REPORT INFORMATION
  Report Type: Spontaneous
  Country: US (occurrence: US)
  Receive Date: 20210908
  Receipt Date: 20210908
  Transmission Date: 20211014
  Serious: Yes (Other)
  Sender: FDA-Public Use
  Company Number: US-AMERICAN REGENT INC-2021001712

PATIENT
  Age: 41 Year
  Sex: Female
  Weight: 150 kg

DRUGS (2)
  1. INJECTAFER [Suspect]
     Active Substance: FERRIC CARBOXYMALTOSE
     Indication: PRODUCT USED FOR UNKNOWN INDICATION
     Dosage: 750 MG
     Dates: start: 2021, end: 2021
  2. INJECTAFER [Suspect]
     Active Substance: FERRIC CARBOXYMALTOSE
     Dosage: 750 MG (ADMINISTERED 7 DAYS APART)
     Dates: start: 2021, end: 2021

REACTIONS (3)
  - Infusion site reaction [Unknown]
  - Infusion site discolouration [Not Recovered/Not Resolved]
  - Extravasation [Recovering/Resolving]

NARRATIVE: CASE EVENT DATE: 2021
